FAERS Safety Report 8784006 (Version 1)
Quarter: 2012Q4

REPORT INFORMATION
  Report Type: 
  Country: UG (occurrence: UG)
  Receive Date: 20120913
  Receipt Date: 20120913
  Transmission Date: 20130627
  Serious: Yes (Death)
  Sender: FDA-Public Use
  Company Number: PHHY2007UG011663

PATIENT
  Sex: Male

DRUGS (1)
  1. GLIVEC [Suspect]
     Dates: start: 20061012

REACTIONS (4)
  - Shock [Fatal]
  - Urosepsis [Fatal]
  - Urinary tract infection [Fatal]
  - Device related infection [None]
